FAERS Safety Report 11957194 (Version 2)
Quarter: 2020Q3

REPORT INFORMATION
  Report Type: Report from Study
  Country: US (occurrence: US)
  Receive Date: 20160126
  Receipt Date: 20160217
  Transmission Date: 20201104
  Serious: Yes (Hospitalization, Other)
  Sender: FDA-Public Use
  Company Number: US-JNJFOC-20151223395

PATIENT
  Age: 53 Year
  Sex: Male
  Weight: 74.2 kg

DRUGS (20)
  1. PROZAC [Concomitant]
     Active Substance: FLUOXETINE HYDROCHLORIDE
     Route: 048
     Dates: start: 20151030
  2. PREDNISONE. [Concomitant]
     Active Substance: PREDNISONE
     Route: 048
  3. DARATUMUMAB [Suspect]
     Active Substance: DARATUMUMAB
     Route: 042
  4. WELLBUTRIN [Concomitant]
     Active Substance: BUPROPION HYDROCHLORIDE
     Route: 048
     Dates: start: 20151030
  5. COLACE [Concomitant]
     Active Substance: DOCUSATE SODIUM
     Route: 048
     Dates: start: 20151030
  6. DURAGESIC [Concomitant]
     Active Substance: FENTANYL
     Route: 062
  7. MEDROL [Concomitant]
     Active Substance: METHYLPREDNISOLONE
  8. DARATUMUMAB [Suspect]
     Active Substance: DARATUMUMAB
     Indication: PLASMA CELL MYELOMA
     Dosage: C1D1
     Route: 042
     Dates: start: 20151207
  9. BUSPIRONE [Concomitant]
     Active Substance: BUSPIRONE HYDROCHLORIDE
     Route: 048
     Dates: start: 20151030
  10. BACTRIM [Concomitant]
     Active Substance: SULFAMETHOXAZOLE\TRIMETHOPRIM
     Indication: ANTIFUNGAL PROPHYLAXIS
     Dosage: 400?80MG  PER TABLET
     Route: 048
     Dates: start: 20151106, end: 201601
  11. DILAUDID [Concomitant]
     Active Substance: HYDROMORPHONE HYDROCHLORIDE
     Indication: PAIN
     Dosage: 1?2 TRABLETS (4?8MG TOTAL) BY MOUTH EVERY 4HRS AS NEEDED FOR PAIN.
     Route: 048
     Dates: start: 20151127, end: 20151227
  12. MULTIVITAMINS [Concomitant]
     Active Substance: VITAMINS
     Dosage: TAKE 24 AND 48 HOURS AFTER ID?DARATUMUMAB INFUSION
     Route: 048
     Dates: start: 20151030
  13. LORAZEPAM. [Concomitant]
     Active Substance: LORAZEPAM
     Dates: start: 20151030
  14. PRILOSEC [Concomitant]
     Active Substance: OMEPRAZOLE MAGNESIUM
     Route: 048
     Dates: start: 20151005
  15. TACROLIMUS. [Concomitant]
     Active Substance: TACROLIMUS
     Route: 061
     Dates: start: 20151030
  16. LEVAQUIN [Concomitant]
     Active Substance: LEVOFLOXACIN
     Route: 048
  17. DIAZEPAM. [Concomitant]
     Active Substance: DIAZEPAM
  18. MAGNESIUM OXIDE. [Concomitant]
     Active Substance: MAGNESIUM OXIDE
     Route: 048
     Dates: start: 20151030
  19. ZOFRAN [Concomitant]
     Active Substance: ONDANSETRON HYDROCHLORIDE
     Dates: start: 20151030
  20. LYRICA [Concomitant]
     Active Substance: PREGABALIN
     Route: 048

REACTIONS (5)
  - Hypotension [Recovered/Resolved]
  - Hypoxia [Recovered/Resolved]
  - Hypercalcaemia [Recovered/Resolved]
  - Pneumonia aspiration [Recovered/Resolved]
  - Acute kidney injury [Recovered/Resolved]

NARRATIVE: CASE EVENT DATE: 20151207
